FAERS Safety Report 6340827-2 (Version None)
Quarter: 2009Q3

REPORT INFORMATION
  Report Type: 
  Country: None (occurrence: None)
  Receive Date: 20090904
  Receipt Date: 20090902
  Transmission Date: 20100115
  Serious: Yes (Life-Threatening, Hospitalization)
  Sender: FDA-Public Use
  Company Number: PHHY2009CA31949

PATIENT
  Sex: Male

DRUGS (6)
  1. DIOVAN HCT [Suspect]
     Indication: HYPERTENSION
     Dosage: 1 DF (160/12.5 MG) PER DAY
     Route: 048
     Dates: start: 20021001
  2. METFORMIN HCL [Concomitant]
     Dosage: 500 MG, BID
     Dates: start: 20040901
  3. NORVASC [Concomitant]
     Dosage: 10 MG, QD
     Dates: start: 19990101
  4. MAVIK [Concomitant]
     Dosage: 7 MG, QD
     Dates: start: 20071001
  5. LIPITOR [Concomitant]
     Dosage: 10 MG, QD
     Dates: start: 20020101
  6. ZOLOFT [Concomitant]
     Dosage: 100 MG, QD
     Dates: start: 19990101

REACTIONS (2)
  - APHASIA [None]
  - CEREBROVASCULAR ACCIDENT [None]
